FAERS Safety Report 16256539 (Version 1)
Quarter: 2019Q2

REPORT INFORMATION
  Report Type: Spontaneous
  Country: US (occurrence: US)
  Receive Date: 20190430
  Receipt Date: 20190430
  Transmission Date: 20190711
  Serious: No
  Sender: FDA-Public Use
  Company Number: US-ABBVIE-18K-163-2493459-00

PATIENT
  Age: 45 Year
  Sex: Female

DRUGS (1)
  1. CREON [Suspect]
     Active Substance: PANCRELIPASE AMYLASE\PANCRELIPASE LIPASE\PANCRELIPASE PROTEASE
     Indication: NEOPLASM MALIGNANT
     Dosage: ON 12 SEP 2018 SHE TOOK 2 CAPSULES AND IN 13 SEP 2018 SHE TOOK 3 CAPSULES.
     Route: 048
     Dates: start: 20180912, end: 20180913

REACTIONS (4)
  - Abdominal distension [Unknown]
  - Muscle spasms [Unknown]
  - Constipation [Unknown]
  - Adverse drug reaction [Unknown]

NARRATIVE: CASE EVENT DATE: 201809
